FAERS Safety Report 19079002 (Version 1)
Quarter: 2021Q1

REPORT INFORMATION
  Report Type: Spontaneous
  Country: DE (occurrence: DE)
  Receive Date: 20210331
  Receipt Date: 20210331
  Transmission Date: 20210420
  Serious: Yes (Other)
  Sender: FDA-Public Use
  Company Number: NVSC2021DE066045

PATIENT
  Age: 56 Year
  Sex: Male

DRUGS (3)
  1. OXALIPLATIN. [Suspect]
     Active Substance: OXALIPLATIN
     Indication: HEPATOCELLULAR CARCINOMA
     Dosage: 85 MG/M2, CYCLIC (ADMINISTERED ON DAY 2 OF 14?DAYS?CYCLE)
     Route: 065
     Dates: start: 200705, end: 200709
  2. GEMCITABINE. [Suspect]
     Active Substance: GEMCITABINE
     Indication: HEPATOCELLULAR CARCINOMA
     Dosage: 1000 MG/M2, CYCLIC (ADMINISTERED WITH BEVACIZUMAB ON DAY 1 OF 14?DAYS?CYCLE)
     Route: 065
     Dates: start: 200705, end: 200709
  3. BEVACIZUMAB. [Suspect]
     Active Substance: BEVACIZUMAB
     Indication: HEPATOCELLULAR CARCINOMA
     Dosage: 10 MG/KG, CYCLIC (ADMINISTERED WITH GEMCITABINE ON DAY 1 OF 14?DAYS?CYCLE)
     Route: 065
     Dates: start: 200705, end: 200709

REACTIONS (6)
  - Product use in unapproved indication [Unknown]
  - Renal failure [Recovered/Resolved]
  - Weight decreased [Recovered/Resolved]
  - Off label use [Unknown]
  - Treatment failure [Unknown]
  - Pancytopenia [Recovered/Resolved]
